FAERS Safety Report 11724176 (Version 1)
Quarter: 2015Q4

REPORT INFORMATION
  Report Type: Spontaneous
  Country: DE (occurrence: DE)
  Receive Date: 20151111
  Receipt Date: 20151111
  Transmission Date: 20160304
  Serious: Yes (Hospitalization)
  Sender: FDA-Public Use
  Company Number: DE-BAYER-2015-454720

PATIENT
  Age: 43 Year
  Sex: Female
  Weight: 118 kg

DRUGS (3)
  1. CIPROBAY [Suspect]
     Active Substance: CIPROFLOXACIN
     Indication: SINUSITIS
     Dosage: UNK
  2. PIPERACILLIN AND TAZOBACTAM [Concomitant]
     Active Substance: PIPERACILLIN SODIUM\TAZOBACTAM SODIUM
  3. G-CSF [Concomitant]
     Active Substance: GRANULOCYTE COLONY-STIMULATING FACTOR NOS

REACTIONS (3)
  - Hypoalbuminaemia [Not Recovered/Not Resolved]
  - Generalised oedema [Not Recovered/Not Resolved]
  - Tenosynovitis [None]

NARRATIVE: CASE EVENT DATE: 201508
